FAERS Safety Report 6887381-4 (Version None)
Quarter: 2010Q3

REPORT INFORMATION
  Report Type: 
  Country: None (occurrence: None)
  Receive Date: 20100730
  Receipt Date: 20091217
  Transmission Date: 20110219
  Serious: No
  Sender: FDA-Public Use
  Company Number: A0835633A

PATIENT
  Age: 47 Year
  Sex: Male

DRUGS (11)
  1. IMITREX [Suspect]
     Indication: MIGRAINE
     Dosage: 50MG AS REQUIRED
     Route: 048
  2. IMITREX [Suspect]
     Dosage: 4MG AS REQUIRED
     Route: 058
     Dates: start: 19920101
  3. BETA BLOCKERS [Concomitant]
  4. CALCIUM CHANNEL BLOCKERS [Concomitant]
  5. ZANAFLEX [Concomitant]
  6. TOPAMAX [Concomitant]
  7. LYRICA [Concomitant]
  8. TREXIMET [Concomitant]
  9. PHENERGAN [Concomitant]
  10. PHENERGAN [Concomitant]
  11. NAPROXEN [Concomitant]

REACTIONS (2)
  - DRUG INEFFECTIVE [None]
  - HEADACHE [None]
